FAERS Safety Report 11317031 (Version 1)
Quarter: 2015Q3

REPORT INFORMATION
  Report Type: Report from Study
  Country: US (occurrence: US)
  Receive Date: 20150728
  Receipt Date: 20150728
  Transmission Date: 20151125
  Serious: Yes (Hospitalization, Other)
  Sender: FDA-Public Use
  Company Number: US-GILEAD-2015-0164912

PATIENT
  Age: 53 Year
  Sex: Female

DRUGS (13)
  1. NIFEDIPINE. [Concomitant]
     Active Substance: NIFEDIPINE
  2. ASPIRIN                            /00002701/ [Concomitant]
     Active Substance: ASPIRIN
  3. FUROSEMIDE. [Concomitant]
     Active Substance: FUROSEMIDE
  4. AMBRISENTAN [Suspect]
     Active Substance: AMBRISENTAN
     Indication: PULMONARY HYPERTENSION
     Dosage: 5 MG, QD
     Route: 065
     Dates: start: 20141226, end: 20150719
  5. ERGOCALCIFEROL. [Concomitant]
     Active Substance: ERGOCALCIFEROL
  6. FOLIC ACID. [Concomitant]
     Active Substance: FOLIC ACID
  7. PANTOPRAZOLE [Concomitant]
     Active Substance: PANTOPRAZOLE SODIUM
  8. HYDROXYUREA. [Concomitant]
     Active Substance: HYDROXYUREA
  9. HYDRALAZINE [Concomitant]
     Active Substance: HYDRALAZINE HYDROCHLORIDE
  10. ENALAPRIL [Concomitant]
     Active Substance: ENALAPRIL
  11. CARVEDILOL. [Concomitant]
     Active Substance: CARVEDILOL
  12. LOVASTATIN. [Concomitant]
     Active Substance: LOVASTATIN
  13. ALLOPURINOL. [Concomitant]
     Active Substance: ALLOPURINOL

REACTIONS (1)
  - Sickle cell anaemia with crisis [Not Recovered/Not Resolved]
